FAERS Safety Report 19474664 (Version 4)
Quarter: 2021Q3

REPORT INFORMATION
  Report Type: Report from Study
  Country: CN (occurrence: CN)
  Receive Date: 20210630
  Receipt Date: 20210823
  Transmission Date: 20211014
  Serious: Yes (Hospitalization)
  Sender: FDA-Public Use
  Company Number: CN-ROCHE-2857205

PATIENT
  Age: 59 Year
  Sex: Male
  Weight: 52.5 kg

DRUGS (21)
  1. TAGAMET [Concomitant]
     Active Substance: CIMETIDINE
     Route: 050
     Dates: start: 20210610, end: 20210610
  2. EMEND [Concomitant]
     Active Substance: APREPITANT
     Dosage: MEDICATION DOSE 1 TABLET
     Route: 048
     Dates: start: 20210611, end: 20210613
  3. PACLITAXEL. [Suspect]
     Active Substance: PACLITAXEL
     Indication: OESOPHAGEAL SQUAMOUS CELL CARCINOMA
     Dosage: DATE OF MOST RECENT DOSE (271 MG) OF PACLITAXEL PRIOR TO AE/SAE ONSET: 11/JUN/2021
     Route: 042
     Dates: start: 20210611
  4. ONDANSETRON HYDROCHLORIDE. [Concomitant]
     Active Substance: ONDANSETRON HYDROCHLORIDE
     Route: 042
     Dates: start: 20210611, end: 20210614
  5. POVIDONE?IODINE. [Concomitant]
     Active Substance: POVIDONE-IODINE
     Route: 062
     Dates: start: 20210610, end: 20210610
  6. DIPHENHYDRAMINE HYDROCHLORIDE. [Concomitant]
     Active Substance: DIPHENHYDRAMINE HYDROCHLORIDE
     Dosage: GIVEN FOR PROPHYLAXIS YES
     Route: 030
     Dates: start: 20210611, end: 20210611
  7. TIRAGOLUMAB. [Suspect]
     Active Substance: TIRAGOLUMAB
     Indication: OESOPHAGEAL SQUAMOUS CELL CARCINOMA
     Dosage: DATE OF MOST RECENT DOSE OF BLINDED TIRAGOLUMAB PRIOR TO AE/SAE ONSET: 11/JUN/2021
     Route: 042
     Dates: start: 20210611
  8. DEXAMETHASONE SODIUM PHOSPHATE. [Concomitant]
     Active Substance: DEXAMETHASONE SODIUM PHOSPHATE
     Dosage: GIVEN FOR PROPHYLAXIS YES
     Route: 042
     Dates: start: 20210614, end: 20210614
  9. ATEZOLIZUMAB. [Suspect]
     Active Substance: ATEZOLIZUMAB
     Indication: OESOPHAGEAL SQUAMOUS CELL CARCINOMA
     Dosage: DATE OF MOST RECENT DOSE OF BLINDED ATEZOLIZUMAB PRIOR TO AE/SAE ONSET: 11/JUN/2021
     Route: 042
     Dates: start: 20210611
  10. POTASSIUM CHLORIDE. [Concomitant]
     Active Substance: POTASSIUM CHLORIDE
     Route: 050
     Dates: start: 20210612, end: 20210614
  11. DEXAMETHASONE SODIUM PHOSPHATE. [Concomitant]
     Active Substance: DEXAMETHASONE SODIUM PHOSPHATE
     Dosage: GIVEN FOR PROPHYLAXIS YES
     Route: 042
     Dates: start: 20210611, end: 20210611
  12. DEXAMETHASONE SODIUM PHOSPHATE. [Concomitant]
     Active Substance: DEXAMETHASONE SODIUM PHOSPHATE
     Dosage: GIVEN FOR PROPHYLAXIS YES
     Route: 042
     Dates: start: 20210612, end: 20210612
  13. DEXAMETHASONE SODIUM PHOSPHATE. [Concomitant]
     Active Substance: DEXAMETHASONE SODIUM PHOSPHATE
     Dosage: GIVEN FOR PROPHYLAXIS YES
     Route: 050
     Dates: start: 20210614, end: 20210614
  14. VITAMIN B6 [Concomitant]
     Active Substance: PYRIDOXINE HYDROCHLORIDE
     Route: 050
     Dates: start: 20210610, end: 20210614
  15. MANNITOL. [Concomitant]
     Active Substance: MANNITOL
     Indication: POLYURIA
     Route: 050
     Dates: start: 20210611, end: 20210614
  16. METOCLOPRAMIDE HYDROCHLORIDE. [Concomitant]
     Active Substance: METOCLOPRAMIDE HYDROCHLORIDE
     Dosage: GIVEN FOR PROPHYLAXIS YES
     Route: 030
     Dates: start: 20210613, end: 20210613
  17. SODIUM POTASSIUM MAGNESIUM CALCIUM AND GLUCOSE [Concomitant]
     Route: 050
     Dates: start: 20210611, end: 20210614
  18. CISPLATIN. [Suspect]
     Active Substance: CISPLATIN
     Indication: OESOPHAGEAL SQUAMOUS CELL CARCINOMA
     Dosage: DATE OF MOST RECENT DOSE (93 MG) OF CISPLATIN PRIOR TO AE/SAE ONSET: 11/JUN/2021
     Route: 042
     Dates: start: 20210611
  19. TAGAMET [Concomitant]
     Active Substance: CIMETIDINE
     Route: 050
     Dates: start: 20210611, end: 20210614
  20. ONDANSETRON HYDROCHLORIDE. [Concomitant]
     Active Substance: ONDANSETRON HYDROCHLORIDE
     Route: 042
     Dates: start: 20210615, end: 20210617
  21. MEGESTROL ACETATE. [Concomitant]
     Active Substance: MEGESTROL ACETATE
     Route: 048
     Dates: start: 20210615, end: 20210624

REACTIONS (1)
  - Myelosuppression [Recovered/Resolved]

NARRATIVE: CASE EVENT DATE: 20210621
